FAERS Safety Report 8392840-1 (Version None)
Quarter: 2012Q1

REPORT INFORMATION
  Report Type: 
  Country: None (occurrence: None)
  Receive Date: 20120323
  Receipt Date: 20110225
  Transmission Date: 20120608
  Serious: Yes (Other)
  Sender: FDA-Public Use
  Company Number: 163-21880-11030306

PATIENT
  Age: 60 Year
  Sex: Female

DRUGS (6)
  1. ZOLINZA (VORINOSTAT) [Concomitant]
  2. SOLU-MEDROL [Concomitant]
  3. BLOOD (BLOOD AND RELATED PRODUCTS) [Concomitant]
  4. REVLIMID [Suspect]
     Indication: MULTIPLE MYELOMA
     Dosage: 15 MG, DAILY X 21 DAYS, PO
     Route: 048
     Dates: start: 20101201
  5. VELCADE [Concomitant]
  6. DEXAMETHASONE [Concomitant]

REACTIONS (2)
  - THROMBOSIS [None]
  - NEUTROPENIA [None]
